FAERS Safety Report 20748456 (Version 1)
Quarter: 2022Q2

REPORT INFORMATION
  Report Type: Spontaneous
  Country: JP (occurrence: JP)
  Receive Date: 20220426
  Receipt Date: 20220426
  Transmission Date: 20220720
  Serious: Yes (Other)
  Sender: FDA-Public Use
  Company Number: JP-SA-2022SA074413

PATIENT
  Age: 47 Year
  Sex: Female

DRUGS (6)
  1. DUPIXENT [Suspect]
     Active Substance: DUPILUMAB
     Indication: Dermatitis atopic
     Dosage: 600 MG, 1X
     Route: 058
     Dates: start: 20211013, end: 20211013
  2. ALLELOCK [Concomitant]
     Active Substance: OLOPATADINE HYDROCHLORIDE
     Indication: Pruritus
     Dosage: 5 MG, BID
     Route: 048
     Dates: start: 20210906, end: 20211229
  3. CLOBETASOL [Concomitant]
     Active Substance: CLOBETASOL
     Indication: Dermatitis atopic
     Dosage: TWICE DAILY (MIXED, LIMBS)
     Route: 061
     Dates: start: 20210906, end: 20211229
  4. PETROLATUM SALICYLATE [Concomitant]
     Indication: Dermatitis atopic
     Dosage: TWICE DAILY (MIXED, LIMBS)
     Route: 061
     Dates: start: 20210906, end: 20211229
  5. BETAMETHASONE DIPROPIONATE [Concomitant]
     Active Substance: BETAMETHASONE DIPROPIONATE
     Indication: Dermatitis atopic
     Dosage: TWICE DAILY (MIXED, NECK, TRUNK)
     Route: 061
     Dates: start: 20210906, end: 20211229
  6. PETROLATUM [Concomitant]
     Active Substance: PETROLATUM
     Indication: Dermatitis atopic
     Dosage: TWICE DAILY (MIXED, NECK, TRUNK)
     Route: 061
     Dates: start: 20210906, end: 20211229

REACTIONS (6)
  - Cutaneous lymphoma [Unknown]
  - Skin mass [Recovering/Resolving]
  - Erythema [Unknown]
  - Lymphadenopathy [Unknown]
  - Skin exfoliation [Unknown]
  - Lichenification [Unknown]

NARRATIVE: CASE EVENT DATE: 20211013
